FAERS Safety Report 22139771 (Version 1)
Quarter: 2023Q1

REPORT INFORMATION
  Report Type: Spontaneous
  Country: TH (occurrence: TH)
  Receive Date: 20230327
  Receipt Date: 20230327
  Transmission Date: 20230418
  Serious: Yes (Hospitalization, Other)
  Sender: FDA-Public Use
  Company Number: TH-SA-2023SA088567

PATIENT
  Age: 16 Year
  Sex: Female

DRUGS (47)
  1. ALIROCUMAB [Suspect]
     Active Substance: ALIROCUMAB
     Indication: Hypercholesterolaemia
     Dosage: 75 MG EVERY 2 WEEKS
     Route: 058
  2. ALIROCUMAB [Suspect]
     Active Substance: ALIROCUMAB
     Indication: Dyslipidaemia
     Dosage: 75 MG, BEFORE FROZEN ALIROCUMAB INJECTION
     Route: 058
     Dates: start: 20181225
  3. ALIROCUMAB [Suspect]
     Active Substance: ALIROCUMAB
     Dosage: 75 MG, BEFORE FROZEN ALIROCUMAB INJECTION
     Route: 058
     Dates: start: 20181127
  4. ALIROCUMAB [Suspect]
     Active Substance: ALIROCUMAB
     Dosage: 75 MG, AFTER FROZEN ALIROCUMAB INJECTION
     Route: 058
     Dates: start: 20190108
  5. ALIROCUMAB [Suspect]
     Active Substance: ALIROCUMAB
     Dosage: 75 MG, AFTER FROZEN ALIROCUMAB INJECTION
     Route: 058
     Dates: start: 20190122
  6. PREDNISOLONE [Concomitant]
     Active Substance: PREDNISOLONE
     Indication: Nephrotic syndrome
     Dosage: 2 MG/KG, QD
  7. PREDNISOLONE [Concomitant]
     Active Substance: PREDNISOLONE
     Dosage: 60 MG, QD, BEFORE FROZEN ALIROCUMAB INJECTION
     Dates: start: 20180405
  8. PREDNISOLONE [Concomitant]
     Active Substance: PREDNISOLONE
     Dosage: 50 MG, QD, BEFORE FROZEN ALIROCUMAB INJECTION
     Dates: start: 20180602
  9. PREDNISOLONE [Concomitant]
     Active Substance: PREDNISOLONE
     Dosage: 20 MG, QD, BEFORE FROZEN ALIROCUMAB INJECTION
     Dates: start: 20181004
  10. PREDNISOLONE [Concomitant]
     Active Substance: PREDNISOLONE
     Dosage: 15 MG, QD, BEFORE FROZEN ALIROCUMAB INJECTION
     Dates: start: 20181127
  11. PREDNISOLONE [Concomitant]
     Active Substance: PREDNISOLONE
     Dosage: 20 MG, QD, BEFORE FROZEN ALIROCUMAB INJECTION
     Dates: start: 20181225
  12. PREDNISOLONE [Concomitant]
     Active Substance: PREDNISOLONE
     Dosage: 35 MG, QD, AFTER FROZEN ALIROCUMAB INJECTION
     Dates: start: 20190205
  13. PREDNISOLONE [Concomitant]
     Active Substance: PREDNISOLONE
     Dosage: 30 MG, QD, AFTER FROZEN ALIROCUMAB INJECTION
     Dates: start: 20190214
  14. PREDNISOLONE [Concomitant]
     Active Substance: PREDNISOLONE
     Dosage: 20 MG, QD, AFTER FROZEN ALIROCUMAB INJECTION
     Dates: start: 20190321
  15. PREDNISOLONE [Concomitant]
     Active Substance: PREDNISOLONE
     Dosage: 15 MG, QD, AFTER FROZEN ALIROCUMAB INJECTION
     Dates: start: 20190425
  16. PREDNISOLONE [Concomitant]
     Active Substance: PREDNISOLONE
     Dosage: 15 MG, QD, AFTER FROZEN ALIROCUMAB INJECTION
     Dates: start: 20190425
  17. PREDNISOLONE [Concomitant]
     Active Substance: PREDNISOLONE
     Dosage: 10 MG, QD, AFTER FROZEN ALIROCUMAB INJECTION
     Dates: start: 20190704
  18. SIMVASTATIN [Concomitant]
     Active Substance: SIMVASTATIN
     Indication: Dyslipidaemia
     Dosage: 10 MG, QD, BEFORE FROZEN ALIROCUMAB INJECTION
     Dates: start: 20181004
  19. SIMVASTATIN [Concomitant]
     Active Substance: SIMVASTATIN
     Dosage: 10 MG, QD, BEFORE FROZEN ALIROCUMAB INJECTION
     Dates: start: 20181127
  20. SIMVASTATIN [Concomitant]
     Active Substance: SIMVASTATIN
     Dosage: 10 MG, QD, BEFORE FROZEN ALIROCUMAB INJECTION
     Dates: start: 20181225
  21. SIMVASTATIN [Concomitant]
     Active Substance: SIMVASTATIN
     Dosage: 10 MG, QD, AFTER FROZEN ALIROCUMAB INJECTION
     Dates: start: 20190205
  22. SIMVASTATIN [Concomitant]
     Active Substance: SIMVASTATIN
     Dosage: 10 MG, QD, AFTER FROZEN ALIROCUMAB INJECTION
     Dates: start: 20190214
  23. SIMVASTATIN [Concomitant]
     Active Substance: SIMVASTATIN
     Dosage: 10 MG, QD, AFTER FROZEN ALIROCUMAB INJECTION
     Dates: start: 20190321
  24. SIMVASTATIN [Concomitant]
     Active Substance: SIMVASTATIN
     Dosage: 20 MG, QD, AFTER FROZEN ALIROCUMAB INJECTION
     Dates: start: 20190425
  25. SIMVASTATIN [Concomitant]
     Active Substance: SIMVASTATIN
     Dosage: 10 MG, QD, AFTER FROZEN ALIROCUMAB INJECTION
     Dates: start: 20190704
  26. GEMFIBROZIL [Concomitant]
     Active Substance: GEMFIBROZIL
     Indication: Dyslipidaemia
     Dosage: 300 MG, QD, BEFORE FROZEN ALIROCUMAB INJECTION
     Dates: start: 20180405
  27. GEMFIBROZIL [Concomitant]
     Active Substance: GEMFIBROZIL
     Dosage: 600 MG, QD, BEFORE FROZEN ALIROCUMAB INJECTION
     Dates: start: 20180602
  28. GEMFIBROZIL [Concomitant]
     Active Substance: GEMFIBROZIL
     Dosage: 600 MG, QD, BEFORE FROZEN ALIROCUMAB INJECTION
     Dates: start: 20181004
  29. GEMFIBROZIL [Concomitant]
     Active Substance: GEMFIBROZIL
     Dosage: 600 MG, QD, BEFORE FROZEN ALIROCUMAB INJECTION
     Dates: start: 20181127
  30. GEMFIBROZIL [Concomitant]
     Active Substance: GEMFIBROZIL
     Dosage: 600 MG, QD, BEFORE FROZEN ALIROCUMAB INJECTION
     Dates: start: 20181225
  31. GEMFIBROZIL [Concomitant]
     Active Substance: GEMFIBROZIL
     Dosage: 600 MG, QD, AFTER FROZEN ALIROCUMAB INJECTION
     Dates: start: 20190205
  32. GEMFIBROZIL [Concomitant]
     Active Substance: GEMFIBROZIL
     Dosage: 600 MG, QD, AFTER FROZEN ALIROCUMAB INJECTION
     Dates: start: 20190214
  33. GEMFIBROZIL [Concomitant]
     Active Substance: GEMFIBROZIL
     Dosage: 600 MG, QD, AFTER FROZEN ALIROCUMAB INJECTION
     Dates: start: 20190321
  34. GEMFIBROZIL [Concomitant]
     Active Substance: GEMFIBROZIL
     Dosage: 300 MG, QD, AFTER FROZEN ALIROCUMAB INJECTION
     Dates: start: 20190425
  35. GEMFIBROZIL [Concomitant]
     Active Substance: GEMFIBROZIL
     Dosage: 600 MG, QD, AFTER FROZEN ALIROCUMAB INJECTION
     Dates: start: 20190704
  36. MYCOPHENOLATE MOFETIL [Concomitant]
     Active Substance: MYCOPHENOLATE MOFETIL
     Indication: Immunosuppressant drug therapy
     Dosage: 1000 MG, QD BEFORE FROZEN ALIROCUMAB INJECTION
     Dates: start: 20180602
  37. MYCOPHENOLATE MOFETIL [Concomitant]
     Active Substance: MYCOPHENOLATE MOFETIL
     Dosage: 2000 MG, QD BEFORE FROZEN ALIROCUMAB INJECTION
     Dates: start: 20181004
  38. MYCOPHENOLATE MOFETIL [Concomitant]
     Active Substance: MYCOPHENOLATE MOFETIL
     Dosage: 2000 MG, QD BEFORE FROZEN ALIROCUMAB INJECTION
     Dates: start: 20181127
  39. MYCOPHENOLATE MOFETIL [Concomitant]
     Active Substance: MYCOPHENOLATE MOFETIL
     Dosage: 2000 MG, QD BEFORE FROZEN ALIROCUMAB INJECTION
     Dates: start: 20181225
  40. FENOFIBRATE [Concomitant]
     Active Substance: FENOFIBRATE
     Indication: Hypercholesterolaemia
     Dosage: 200 MG, QD BEFORE FROZEN ALIROCUMAB INJECTION
     Dates: start: 20180322
  41. TACROLIMUS [Concomitant]
     Active Substance: TACROLIMUS
     Indication: Immunosuppressant drug therapy
  42. RITUXIMAB [Concomitant]
     Active Substance: RITUXIMAB
     Indication: Immunosuppressant drug therapy
  43. CYCLOSPORINE [Concomitant]
     Active Substance: CYCLOSPORINE
     Dosage: 150 MG, QD AFTER FROZEN ALIROCUMAB INJECTION
     Dates: start: 20190205
  44. CYCLOSPORINE [Concomitant]
     Active Substance: CYCLOSPORINE
     Dosage: 200 MG, QD AFTER FROZEN ALIROCUMAB INJECTION
     Dates: start: 20190214
  45. CYCLOSPORINE [Concomitant]
     Active Substance: CYCLOSPORINE
     Dosage: 50 MG, QD AFTER FROZEN ALIROCUMAB INJECTION
     Dates: start: 20190425
  46. CYCLOSPORINE [Concomitant]
     Active Substance: CYCLOSPORINE
     Dosage: 100 MG, QD AFTER FROZEN ALIROCUMAB INJECTION
     Dates: start: 20190704
  47. CYCLOPHOSPHAMIDE [Concomitant]
     Active Substance: CYCLOPHOSPHAMIDE
     Indication: Nephrotic syndrome
     Route: 048

REACTIONS (8)
  - Acute kidney injury [Unknown]
  - Diarrhoea [Unknown]
  - Skin reaction [Recovered/Resolved]
  - Pallor [Recovered/Resolved]
  - Rash erythematous [Recovered/Resolved]
  - Macule [Recovered/Resolved]
  - Skin lesion [Recovered/Resolved]
  - Product storage error [Unknown]
